FAERS Safety Report 10051423 (Version 1)
Quarter: 2014Q2

REPORT INFORMATION
  Report Type: Spontaneous
  Country: US (occurrence: US)
  Receive Date: 20140401
  Receipt Date: 20140401
  Transmission Date: 20141212
  Serious: No
  Sender: FDA-Public Use
  Company Number: US-PFIZER INC-2014090045

PATIENT
  Age: 30 Year
  Sex: Female

DRUGS (10)
  1. LYRICA [Suspect]
     Dosage: 75 MG, 2X/DAY (BID)
     Route: 048
     Dates: start: 20140321
  2. AUGMENTIN [Suspect]
     Dosage: UNK
  3. RIFAMPIN [Suspect]
     Dosage: UNK
  4. ELAVIL [Concomitant]
     Dosage: UNK
  5. CELEXA [Concomitant]
  6. BENADRYL [Concomitant]
     Dosage: UNK
  7. YAZ [Concomitant]
     Dosage: UNK
  8. ATIVAN [Concomitant]
     Dosage: UNK
  9. VENTOLIN HFA [Concomitant]
     Dosage: UNK
  10. FLONAX [Concomitant]
     Dosage: UNK

REACTIONS (1)
  - Drug hypersensitivity [Unknown]
